FAERS Safety Report 5751996-7 (Version None)
Quarter: 2008Q2

REPORT INFORMATION
  Report Type: 
  Country: None (occurrence: None)
  Receive Date: 20080529
  Receipt Date: 20080522
  Transmission Date: 20081010
  Serious: Yes (Hospitalization)
  Sender: FDA-Public Use
  Company Number: BE-ABBOTT-08P-013-0452772-00

PATIENT
  Sex: Female

DRUGS (2)
  1. REDUCTIL 10MG [Suspect]
     Indication: DRUG USE FOR UNKNOWN INDICATION
     Route: 048
     Dates: start: 20070701, end: 20070801
  2. REDUCTIL 10MG [Suspect]
     Dosage: NOT REPORTED
     Dates: start: 20080101

REACTIONS (1)
  - PANCREATITIS [None]
